FAERS Safety Report 14371577 (Version 9)
Quarter: 2018Q3

REPORT INFORMATION
  Report Type: Spontaneous
  Country: DE (occurrence: DE)
  Receive Date: 20180110
  Receipt Date: 20180821
  Transmission Date: 20181010
  Serious: Yes (Hospitalization, Other)
  Sender: FDA-Public Use
  Company Number: PHHY2016DE185926

PATIENT
  Age: 62 Year
  Sex: Male
  Weight: 70 kg

DRUGS (21)
  1. AVASTIN [Suspect]
     Active Substance: BEVACIZUMAB
     Dosage: 355 MG, Q2W
     Route: 042
     Dates: start: 20161024
  2. AVASTIN [Suspect]
     Active Substance: BEVACIZUMAB
     Dosage: 350 MG, Q2W
     Route: 042
     Dates: start: 20161024
  3. ONDANSETRON [Concomitant]
     Active Substance: ONDANSETRON
     Dosage: 8 MG, QD
     Route: 042
     Dates: start: 20151228
  4. BISOPROLOL [Concomitant]
     Active Substance: BISOPROLOL
     Indication: HYPERTENSION
     Dosage: 5 MG, QD
     Route: 048
  5. IRINOTECAN [Suspect]
     Active Substance: IRINOTECAN
     Indication: COLORECTAL CANCER
     Dosage: 298.65 MG, Q2W
     Route: 042
     Dates: start: 20151228, end: 20161107
  6. FOLINIC ACID [Suspect]
     Active Substance: LEUCOVORIN
     Dosage: 1 DF, BIW (362?364 MG)
     Route: 042
     Dates: start: 20161107
  7. PANTOPRAZOLE [Concomitant]
     Active Substance: PANTOPRAZOLE
     Indication: PRODUCT USED FOR UNKNOWN INDICATION
     Dosage: 40 MG, QD
     Route: 048
     Dates: start: 20160619
  8. ONDANSETRON [Concomitant]
     Active Substance: ONDANSETRON
     Indication: NAUSEA
     Dosage: 6 MG, QD
     Route: 042
     Dates: start: 20151228
  9. IRINOTECAN [Suspect]
     Active Substance: IRINOTECAN
     Dosage: 326MG, Q2W
     Route: 042
     Dates: start: 20161107
  10. OXALIPLATIN. [Suspect]
     Active Substance: OXALIPLATIN
     Dosage: 123.76 OR 122 MG, Q2W
     Route: 042
     Dates: start: 20160815
  11. 5?FLUOROURACIL [Suspect]
     Active Substance: FLUOROURACIL
     Dosage: 724 MG, BIW, 4344?5792 MG
     Route: 040
     Dates: start: 20161107
  12. FOLINIC ACID [Suspect]
     Active Substance: LEUCOVORIN
     Indication: COLORECTAL CANCER
     Dosage: 1 DF, BIW (362?364 MG)
     Route: 042
     Dates: start: 20151228
  13. AVASTIN [Suspect]
     Active Substance: BEVACIZUMAB
     Indication: COLORECTAL CANCER METASTATIC
     Dosage: 355 MG, Q2W
     Route: 042
     Dates: start: 20160404
  14. PEGFILGRASTIM [Suspect]
     Active Substance: PEGFILGRASTIM
     Indication: NEUTROPENIA
     Dosage: 6 MG, 14D
     Route: 042
     Dates: start: 20151228
  15. AVASTIN [Suspect]
     Active Substance: BEVACIZUMAB
     Indication: COLORECTAL CANCER METASTATIC
     Dosage: 350 MG, Q2W
     Route: 042
     Dates: start: 20151228
  16. DEXAMETHASON [Concomitant]
     Active Substance: DEXAMETHASONE
     Indication: NAUSEA
     Dosage: 8 MG, UNK (BEFORE CHEMOTHERAPY)
     Route: 042
  17. OXALIPLATIN. [Suspect]
     Active Substance: OXALIPLATIN
     Dosage: 123.76 OR 122 MG, Q2W
     Route: 042
     Dates: start: 20160509
  18. IRINOTECAN [Suspect]
     Active Substance: IRINOTECAN
     Dosage: 652 MG, QW
     Route: 042
     Dates: start: 20161107
  19. 5?FLUOROURACIL [Suspect]
     Active Substance: FLUOROURACIL
     Dosage: 724 MG, BIW, (4344?5792 MG)
     Route: 040
     Dates: start: 20160829
  20. OXALIPLATIN. [Suspect]
     Active Substance: OXALIPLATIN
     Indication: COLORECTAL CANCER
     Dosage: 153.85 MG, Q2W
     Route: 042
     Dates: start: 20151228, end: 20160509
  21. 5?FLUOROURACIL [Suspect]
     Active Substance: FLUOROURACIL
     Indication: COLORECTAL CANCER
     Dosage: 1 DF, BIW, 4344?5792 MG
     Route: 040
     Dates: start: 20151228, end: 20160511

REACTIONS (4)
  - Liver abscess [Recovered/Resolved]
  - Perihepatic abscess [Recovered/Resolved]
  - Off label use [Unknown]
  - Liver abscess [Recovered/Resolved]

NARRATIVE: CASE EVENT DATE: 20160622
